FAERS Safety Report 11157449 (Version 5)
Quarter: 2021Q4

REPORT INFORMATION
  Report Type: Report from Study
  Country: US (occurrence: US)
  Receive Date: 20150603
  Receipt Date: 20211007
  Transmission Date: 20220303
  Serious: Yes (Hospitalization, Other)
  Sender: FDA-Public Use
  Company Number: US-AMGEN-USASP2015053590

PATIENT
  Age: 72 Year
  Sex: Male

DRUGS (5)
  1. ENBREL [Suspect]
     Active Substance: ETANERCEPT
     Indication: Psoriatic arthropathy
     Dosage: UNK, Q2WK
     Route: 065
     Dates: start: 2004
  2. ENBREL [Suspect]
     Active Substance: ETANERCEPT
     Dosage: UNK, Q2WK
     Route: 065
     Dates: start: 2004
  3. ENBREL [Suspect]
     Active Substance: ETANERCEPT
     Dosage: 50 MILLIGRAM, QWK
     Route: 058
     Dates: start: 20060206
  4. ENBREL [Suspect]
     Active Substance: ETANERCEPT
     Dosage: 50 MILLIGRAM, QWK
     Route: 058
  5. COVID-19 VACCINE [Concomitant]
     Dosage: UNK
     Dates: start: 202101

REACTIONS (7)
  - Pyrexia [Recovered/Resolved]
  - Renal cancer [Recovered/Resolved]
  - Loss of consciousness [Recovered/Resolved]
  - Psoriatic arthropathy [Unknown]
  - Off label use [Unknown]
  - Illness [Unknown]
  - Infection [Unknown]

NARRATIVE: CASE EVENT DATE: 20150101
